FAERS Safety Report 10477811 (Version 1)
Quarter: 2014Q3

REPORT INFORMATION
  Report Type: Spontaneous
  Country: TR (occurrence: TR)
  Receive Date: 20140926
  Receipt Date: 20140926
  Transmission Date: 20150326
  Serious: Yes (Hospitalization)
  Sender: FDA-Public Use
  Company Number: PHHY2014TR122025

PATIENT
  Age: 6 Year
  Sex: Female

DRUGS (2)
  1. AMPICILLIN+SULBACTAM [Suspect]
     Active Substance: AMPICILLIN SODIUM\SULBACTAM SODIUM
  2. CLINDAMYCIN [Concomitant]
     Active Substance: CLINDAMYCIN\CLINDAMYCIN PHOSPHATE

REACTIONS (14)
  - Lymphadenitis [Recovering/Resolving]
  - Hepatomegaly [Recovering/Resolving]
  - Eosinophilia [Recovering/Resolving]
  - Oral disorder [Recovering/Resolving]
  - Lymphadenopathy [Recovering/Resolving]
  - Rash morbilliform [Recovering/Resolving]
  - Face oedema [Recovering/Resolving]
  - Leukopenia [Recovering/Resolving]
  - Pyrexia [Recovering/Resolving]
  - Haematuria [Recovering/Resolving]
  - Drug reaction with eosinophilia and systemic symptoms [Recovering/Resolving]
  - Rash [Recovering/Resolving]
  - Lymphocytosis [Recovering/Resolving]
  - Pyuria [Recovering/Resolving]
